FAERS Safety Report 15022463 (Version 1)
Quarter: 2018Q2

REPORT INFORMATION
  Report Type: Spontaneous
  Country: US (occurrence: US)
  Receive Date: 20180618
  Receipt Date: 20180618
  Transmission Date: 20180711
  Serious: Yes (Other)
  Sender: FDA-Public Use
  Company Number: US-BAYER-2018-114740

PATIENT
  Age: 82 Year
  Sex: Male

DRUGS (2)
  1. BAYER ASPIRIN [Suspect]
     Active Substance: ASPIRIN
     Dosage: UNK
  2. APIXABAN [Interacting]
     Active Substance: APIXABAN
     Dosage: UNK

REACTIONS (2)
  - Gastrointestinal haemorrhage [Unknown]
  - Labelled drug-drug interaction medication error [None]
